FAERS Safety Report 12524078 (Version 2)
Quarter: 2017Q3

REPORT INFORMATION
  Report Type: Spontaneous
  Country: DE (occurrence: DE)
  Receive Date: 20160704
  Receipt Date: 20170822
  Transmission Date: 20171127
  Serious: Yes (Other)
  Sender: FDA-Public Use
  Company Number: DE-SUN PHARMACEUTICAL INDUSTRIES LTD-2016R1-119593

PATIENT
  Age: 22 Month
  Sex: Male

DRUGS (2)
  1. PREDNISONE. [Suspect]
     Active Substance: PREDNISONE
     Indication: XANTHOGRANULOMA
     Dosage: 40 MG/M2, DAILY (WEEKLY REDUCTION AFTER WEEK 4)
     Route: 065
  2. VINBLASTIN [Suspect]
     Active Substance: VINBLASTINE
     Indication: XANTHOGRANULOMA
     Dosage: 6 MG/M2, 1/WEEK (FOR 10 WEEKS)
     Route: 042

REACTIONS (4)
  - Hepatomegaly [Recovering/Resolving]
  - Drug ineffective [Recovering/Resolving]
  - Pyrexia [Recovering/Resolving]
  - Neutropenia [Recovering/Resolving]
